FAERS Safety Report 5968025-2 (Version None)
Quarter: 2008Q4

REPORT INFORMATION
  Report Type: 
  Country: None (occurrence: None)
  Receive Date: 20081121
  Receipt Date: 20081110
  Transmission Date: 20090506
  Serious: Yes (Hospitalization)
  Sender: FDA-Public Use
  Company Number: 1000001727

PATIENT
  Age: 76 Year
  Sex: Female
  Weight: 71.8 kg

DRUGS (8)
  1. CITALOPRAM HYDROBROMIDE [Suspect]
     Dosage: 10 MG (10 MG, 1 IN 1 D), ORAL
     Route: 048
     Dates: start: 20080822, end: 20080904
  2. MEMANTINE HCL [Concomitant]
  3. RAMIPRIL [Concomitant]
  4. ESIDRIX [Concomitant]
  5. OMEPRAZOLE [Concomitant]
  6. RISPERDAL [Concomitant]
  7. SIMVASTATIN [Concomitant]
  8. LORAZEPAM [Concomitant]

REACTIONS (1)
  - DERMATITIS ALLERGIC [None]
